FAERS Safety Report 13521567 (Version 1)
Quarter: 2017Q2

REPORT INFORMATION
  Report Type: Spontaneous
  Country: US (occurrence: US)
  Receive Date: 20170506
  Receipt Date: 20170506
  Transmission Date: 20170830
  Serious: Yes (Other)
  Sender: FDA-Public Use
  Company Number: None

PATIENT
  Age: 37 Year
  Sex: Male
  Weight: 78.3 kg

DRUGS (5)
  1. CENTRUM [Concomitant]
     Active Substance: VITAMINS
  2. PRED FORTE [Suspect]
     Active Substance: PREDNISOLONE ACETATE
     Indication: EYE INJURY
     Dosage: QUANTITY:1 DROP(S);?
     Route: 047
     Dates: start: 20170325
  3. PRED FORTE [Suspect]
     Active Substance: PREDNISOLONE ACETATE
     Indication: SURGERY
     Dosage: QUANTITY:1 DROP(S);?
     Route: 047
     Dates: start: 20170325
  4. FINASTERIDE. [Concomitant]
     Active Substance: FINASTERIDE
  5. ZOLOFT [Concomitant]
     Active Substance: SERTRALINE HYDROCHLORIDE

REACTIONS (3)
  - Eye haemorrhage [None]
  - Epistaxis [None]
  - Blood pressure increased [None]

NARRATIVE: CASE EVENT DATE: 20170502
